FAERS Safety Report 8777605 (Version 2)
Quarter: 2013Q1

REPORT INFORMATION
  Report Type: Spontaneous
  Country: US (occurrence: US)
  Receive Date: 20120912
  Receipt Date: 20130312
  Transmission Date: 20140127
  Serious: No
  Sender: FDA-Public Use
  Company Number: US-ASTRAZENECA-2012SE64538

PATIENT
  Age: 56 Year
  Sex: Female

DRUGS (6)
  1. LISINOPRIL [Suspect]
     Route: 048
  2. LISINOPRIL HCTZ [Suspect]
     Route: 048
  3. TOPROL XL [Suspect]
     Route: 048
  4. ACCURETIC [Suspect]
     Route: 065
  5. NEURONTIN [Concomitant]
  6. NORVASC [Concomitant]

REACTIONS (1)
  - Headache [Unknown]
